FAERS Safety Report 5978848-1 (Version None)
Quarter: 2008Q4

REPORT INFORMATION
  Report Type: 
  Country: None (occurrence: None)
  Receive Date: 20081204
  Receipt Date: 20081201
  Transmission Date: 20090506
  Serious: Yes (Death, Hospitalization, Other)
  Sender: FDA-Public Use
  Company Number: PHBS2008GB06489

PATIENT
  Age: 14 Month
  Sex: Male

DRUGS (5)
  1. CYCLOSPORINE [Suspect]
     Indication: NEPHROTIC SYNDROME
  2. PREDNISOLONE [Suspect]
     Indication: NEPHROTIC SYNDROME
  3. ENALAPRIL MALEATE [Concomitant]
  4. AMLODIPINE [Concomitant]
  5. ATENOLOL [Concomitant]

REACTIONS (5)
  - DRUG INEFFECTIVE [None]
  - HAEMODIALYSIS [None]
  - NEPHROPATHY TOXIC [None]
  - PANCREATITIS [None]
  - RENAL FAILURE CHRONIC [None]
